FAERS Safety Report 5341872-6 (Version None)
Quarter: 2007Q2

REPORT INFORMATION
  Report Type: 
  Country: None (occurrence: None)
  Receive Date: 20070529
  Receipt Date: 20070529
  Transmission Date: 20071010
  Serious: No
  Sender: FDA-Public Use
  Company Number: None

PATIENT
  Age: 49 Year
  Sex: Female

DRUGS (1)
  1. FILGRASTIM [Suspect]
     Indication: BREAST CANCER
     Dosage: 480 MCG/ 0.8 ML SUBCUTANEOUS INJECTION
     Route: 058

REACTIONS (1)
  - ANAPHYLACTIC REACTION [None]
